FAERS Safety Report 8507444-7 (Version None)
Quarter: 2012Q3

REPORT INFORMATION
  Report Type: 
  Country: None (occurrence: None)
  Receive Date: 20120712
  Receipt Date: 20120706
  Transmission Date: 20120928
  Serious: Yes (Hospitalization, Disabling, Other)
  Sender: FDA-Public Use
  Company Number: US-BAYER-2012-054923

PATIENT
  Age: 43 Year
  Sex: Female
  Weight: 130 kg

DRUGS (27)
  1. ACTACE [Concomitant]
  2. HYDROCHLOROTHIAZIDE [Concomitant]
  3. ASPIRIN [Concomitant]
     Dosage: UNK
     Route: 048
  4. VANCOMYCIN [Concomitant]
  5. SPIRONOLACTONE [Concomitant]
     Dosage: 50 MG, DAILY
     Route: 048
  6. INSULIN [Concomitant]
  7. FLONASE [Concomitant]
  8. PROVERA [Concomitant]
     Dosage: UNK
     Dates: start: 20040105, end: 20040310
  9. INSULIN [Concomitant]
     Dosage: 20 UNITS IN THE MORNING, 22 UNITS IN THE EVENING
  10. MULTI-VITAMIN [Concomitant]
     Dosage: UNK
     Route: 048
     Dates: start: 20050221
  11. LEVOTHYROXINE SODIUM [Concomitant]
  12. CEFTRIAXONE [Concomitant]
  13. BACTRIM [Concomitant]
  14. NPH INSULIN [Concomitant]
     Dosage: 35 UNITS AT NIGHT
  15. SUDAFED 12 HOUR [Concomitant]
     Dosage: UNK
     Route: 048
  16. YASMIN [Suspect]
     Indication: MENORRHAGIA
  17. ZOSYN [Concomitant]
  18. YASMIN [Suspect]
     Indication: CONTRACEPTION
     Dosage: UNK
     Dates: start: 20020930
  19. LEVOXYL [Concomitant]
     Dosage: 200 ?G, DAILY
     Route: 048
  20. CALCIUM [Concomitant]
     Dosage: UNK
     Route: 048
  21. LOVOXIL [Concomitant]
  22. ALEVE [Concomitant]
  23. NOVOLOG [Concomitant]
  24. METOPROLOL RETARD [Concomitant]
  25. ACTOS [Concomitant]
     Dosage: 30 MG DAILY
     Route: 048
  26. LANTUS [Concomitant]
  27. LISINOPRIL [Concomitant]

REACTIONS (3)
  - PULMONARY EMBOLISM [None]
  - CHOLELITHIASIS [None]
  - DEEP VEIN THROMBOSIS [None]
